FAERS Safety Report 7967260-1 (Version None)
Quarter: 2011Q4

REPORT INFORMATION
  Report Type: 
  Country: None (occurrence: None)
  Receive Date: 20111209
  Receipt Date: 20111202
  Transmission Date: 20120403
  Serious: Yes (Other)
  Sender: FDA-Public Use
  Company Number: US-BRISTOL-MYERS SQUIBB COMPANY-16266322

PATIENT
  Age: 59 Year
  Sex: Male

DRUGS (3)
  1. TRUVADA [Suspect]
  2. REYATAZ [Suspect]
  3. NORVIR [Suspect]

REACTIONS (1)
  - FANCONI SYNDROME [None]
